FAERS Safety Report 19984416 (Version 2)
Quarter: 2022Q2

REPORT INFORMATION
  Report Type: Spontaneous
  Country: ES (occurrence: ES)
  Receive Date: 20211021
  Receipt Date: 20220623
  Transmission Date: 20220720
  Serious: Yes (Death, Life-Threatening, Hospitalization, Other)
  Sender: FDA-Public Use
  Company Number: ES-ASTRAZENECA-2020SE07725

PATIENT
  Age: 21020 Day
  Sex: Female
  Weight: 63.6 kg

DRUGS (12)
  1. CARBOPLATIN [Suspect]
     Active Substance: CARBOPLATIN
     Indication: Ovarian cancer
     Dosage: 466 MG, SINGLE
     Route: 042
     Dates: start: 20200109, end: 20200109
  2. PACLITAXEL [Suspect]
     Active Substance: PACLITAXEL
     Indication: Ovarian cancer
     Dosage: 301 MG, SINGLE
     Route: 042
     Dates: start: 20200109, end: 20200109
  3. BEVACIZUMAB [Suspect]
     Active Substance: BEVACIZUMAB
     Indication: Ovarian cancer
     Dosage: 945 MG, SINGLE
     Route: 042
     Dates: start: 20200109, end: 20200109
  4. OLAPARIB [Suspect]
     Active Substance: OLAPARIB
     Indication: Ovarian cancer
     Dosage: 300 MG, EVERY 12 H
     Route: 048
  5. DURVALUMAB [Suspect]
     Active Substance: DURVALUMAB
     Indication: Ovarian cancer
     Dosage: 1120 MG, EVERY 3 WEEKS
     Route: 042
  6. ACETAMINOPHEN [Concomitant]
     Active Substance: ACETAMINOPHEN
     Indication: Pain
     Dosage: 650 MG, AS NECESSARY
     Route: 048
  7. DEXAMETHASONE [Concomitant]
     Active Substance: DEXAMETHASONE
     Indication: Inflammation
     Dosage: 40 MG, 1X/DAY
     Route: 048
  8. ONDANSETRON [Concomitant]
     Active Substance: ONDANSETRON
     Indication: Nausea
     Dosage: 4 MG, 1X/DAY
     Route: 048
     Dates: start: 20200110, end: 20200111
  9. DIAZEPAM [Concomitant]
     Active Substance: DIAZEPAM
     Indication: Anxiety
     Dosage: 2 MG, 1X/DAY
     Route: 048
  10. TINZAPARIN [Concomitant]
     Active Substance: TINZAPARIN
     Indication: Thrombosis
     Dosage: 1000 UNITS DAILY
     Route: 058
     Dates: end: 20200115
  11. ENTERAL NUTRITIONAL (TP-MCT) [Concomitant]
     Indication: Metabolic disorder
     Dosage: 200 ML, 1X/DAY
     Route: 048
  12. FOLIC ACID [Concomitant]
     Active Substance: FOLIC ACID
     Indication: Vitamin B complex deficiency
     Dosage: 5 MG, 1X/DAY
     Route: 048

REACTIONS (4)
  - Neutropenia [Fatal]
  - Pulmonary oedema [Fatal]
  - Diarrhoea [Not Recovered/Not Resolved]
  - Pyrexia [Unknown]

NARRATIVE: CASE EVENT DATE: 20200112
